FAERS Safety Report 9746984 (Version 1)
Quarter: 2013Q4

REPORT INFORMATION
  Report Type: Spontaneous
  Country: IT (occurrence: IT)
  Receive Date: 20131211
  Receipt Date: 20131211
  Transmission Date: 20140711
  Serious: Yes (Other)
  Sender: FDA-Public Use
  Company Number: IT-MYLANLABS-2013S1027175

PATIENT
  Age: 24 Year
  Sex: Male

DRUGS (3)
  1. HALOPERIDOL [Suspect]
     Indication: THINKING ABNORMAL
     Dosage: 2MG DAILY
     Route: 065
  2. HALOPERIDOL [Suspect]
     Indication: THINKING ABNORMAL
     Route: 030
  3. VALPROATE [Concomitant]
     Indication: THINKING ABNORMAL
     Dosage: 900MG DAILY
     Route: 065

REACTIONS (4)
  - Hypothermia [Unknown]
  - Weight decreased [Unknown]
  - Fatigue [Unknown]
  - Chills [Unknown]
